FAERS Safety Report 5145726-X (Version None)
Quarter: 2006Q4

REPORT INFORMATION
  Report Type: 
  Country: None (occurrence: None)
  Receive Date: 20060915
  Receipt Date: 20050815
  Transmission Date: 20070319
  Serious: Yes (Other)
  Sender: FDA-Public Use
  Company Number: 2005092784

PATIENT
  Age: 84 Year
  Sex: Female

DRUGS (7)
  1. GLIPIZIDE [Suspect]
     Indication: ILL-DEFINED DISORDER
     Dosage: ORAL
     Route: 048
  2. ACTOS [Suspect]
     Indication: ILL-DEFINED DISORDER
  3. LASIX [Concomitant]
  4. ALTACE [Concomitant]
  5. LIPITOR [Concomitant]
  6. FOSAMAX [Concomitant]
  7. RANITIDINE HCL [Concomitant]

REACTIONS (5)
  - ANAEMIA [None]
  - BLOOD GLUCOSE DECREASED [None]
  - DIZZINESS [None]
  - FALL [None]
  - FATIGUE [None]
